FAERS Safety Report 16430697 (Version 1)
Quarter: 2019Q3

REPORT INFORMATION
  Report Type: Spontaneous
  Country: US (occurrence: US)
  Receive Date: 20190613
  Receipt Date: 20190613
  Transmission Date: 20191004
  Serious: Yes (Other)
  Sender: FDA-Public Use
  Company Number: None

PATIENT
  Age: 54 Year
  Sex: Female
  Weight: 66.6 kg

DRUGS (13)
  1. GLUTATHIONE [Concomitant]
     Active Substance: GLUTATHIONE
  2. BROMELAINS [Concomitant]
     Active Substance: BROMELAINS
  3. MILK THISTLE EXTRACT [Concomitant]
     Active Substance: DIETARY SUPPLEMENT\HERBALS\MILK THISTLE
  4. CAPECITABINE. [Suspect]
     Active Substance: CAPECITABINE
     Indication: RECTAL CANCER
     Route: 048
     Dates: start: 20181213
  5. SELENIUM [Concomitant]
     Active Substance: SELENIUM
  6. ADDERALL [Concomitant]
     Active Substance: AMPHETAMINE ASPARTATE\AMPHETAMINE SULFATE\DEXTROAMPHETAMINE SACCHARATE\DEXTROAMPHETAMINE SULFATE
  7. OMEGA 3-6-9 COMPLEX [Concomitant]
  8. VITAMIN D3 [Concomitant]
     Active Substance: CHOLECALCIFEROL
  9. ZINC. [Concomitant]
     Active Substance: ZINC
  10. ASCORBIC ACID. [Concomitant]
     Active Substance: ASCORBIC ACID
  11. BIOTIN [Concomitant]
     Active Substance: BIOTIN
  12. FIORICET [Concomitant]
     Active Substance: ACETAMINOPHEN\BUTALBITAL\CAFFEINE
  13. ONDANSETRON HCL [Concomitant]
     Active Substance: ONDANSETRON HYDROCHLORIDE

REACTIONS (1)
  - Fatigue [None]
